FAERS Safety Report 5003124-3 (Version None)
Quarter: 2006Q2

REPORT INFORMATION
  Report Type: 
  Country: None (occurrence: None)
  Receive Date: 20060512
  Receipt Date: 20060425
  Transmission Date: 20061013
  Serious: Yes (Hospitalization)
  Sender: FDA-Public Use
  Company Number: US200604004268

PATIENT
  Age: 65 Year
  Sex: Female

DRUGS (2)
  1. FORTEO [Suspect]
     Indication: OSTEOPOROSIS
     Dosage: 20 UG
     Dates: end: 20040501
  2. FORTEO [Concomitant]

REACTIONS (3)
  - HEADACHE [None]
  - RENAL CELL CARCINOMA STAGE UNSPECIFIED [None]
  - STRABISMUS [None]
